FAERS Safety Report 8762013 (Version 2)
Quarter: 2012Q4

REPORT INFORMATION
  Report Type: 
  Country: CO (occurrence: CO)
  Receive Date: 20120830
  Receipt Date: 20121023
  Transmission Date: 20130627
  Serious: Yes (Death, Other)
  Sender: FDA-Public Use
  Company Number: CO-PFIZER INC-2012210066

PATIENT
  Age: 91 Year
  Sex: Female

DRUGS (3)
  1. XALATAN [Suspect]
     Indication: GLAUCOMA
     Dosage: 1 Gtt, 1x/day
     Route: 047
     Dates: start: 2010
  2. MONTELUKAST [Concomitant]
     Indication: ASTHMA
     Dosage: 10 mg, 1x/day
     Route: 048
     Dates: start: 2009
  3. CALCITRIOL [Concomitant]
     Indication: OSTEOPOROSIS
     Dosage: 0.25 mg, 1x/day
     Route: 055
     Dates: start: 2010

REACTIONS (2)
  - Respiratory arrest [Fatal]
  - Emphysema [Unknown]
